FAERS Safety Report 7042968-3 (Version None)
Quarter: 2010Q4

REPORT INFORMATION
  Report Type: 
  Country: None (occurrence: None)
  Receive Date: 20101013
  Receipt Date: 20100918
  Transmission Date: 20110411
  Serious: Yes (Hospitalization)
  Sender: FDA-Public Use
  Company Number: PHHY2010US60494

PATIENT
  Sex: Female
  Weight: 116 kg

DRUGS (9)
  1. TEKTURNA HCT [Suspect]
     Indication: HYPERTENSION
     Dosage: 300/12.5 MG DAILY
     Route: 048
  2. LASIX [Suspect]
     Indication: HYPERTENSION
     Dosage: 20 MG DAILY
     Route: 048
     Dates: start: 20080601, end: 20100801
  3. DIOVAN [Concomitant]
     Indication: HYPERTENSION
     Dosage: 320 MG, DAILY
     Route: 048
     Dates: end: 20080101
  4. DIOVAN [Concomitant]
     Dosage: 320 MG, UNK
  5. CELEBREX [Concomitant]
     Indication: ARTHRITIS
     Dosage: 200 MG, DAILY
     Route: 048
     Dates: start: 20070101, end: 20100801
  6. LEVOTHYROXINE SODIUM [Concomitant]
  7. PAXIL [Concomitant]
     Indication: DEPRESSION
     Dosage: 25 MG, DAILY
     Route: 048
     Dates: start: 20071203
  8. CARVEDILOL [Concomitant]
  9. VALTURNA [Concomitant]

REACTIONS (5)
  - BLOOD PRESSURE INADEQUATELY CONTROLLED [None]
  - BLOOD PRESSURE INCREASED [None]
  - CYSTITIS [None]
  - DIZZINESS [None]
  - HYPOTENSION [None]
